FAERS Safety Report 8398505-4 (Version None)
Quarter: 2012Q2

REPORT INFORMATION
  Report Type: 
  Country: None (occurrence: None)
  Receive Date: 20120531
  Receipt Date: 20120523
  Transmission Date: 20120825
  Serious: Yes (Disabling, Other)
  Sender: FDA-Public Use
  Company Number: US-ASTRAZENECA-2008UW02512

PATIENT
  Age: 65 Year
  Sex: Female
  Weight: 128.4 kg

DRUGS (21)
  1. CALCIUM [Concomitant]
  2. ARIMIDEX [Suspect]
     Route: 048
     Dates: start: 20071001
  3. ATENOLOL [Concomitant]
     Indication: HYPERTENSION
     Route: 048
  4. CAPOTEN [Concomitant]
  5. FOLIC ACID [Concomitant]
  6. VITAMIN B-12 [Concomitant]
     Dosage: MONTHLY
  7. ARIMIDEX [Suspect]
     Indication: BREAST CANCER
     Route: 048
     Dates: start: 20070601, end: 20070801
  8. ARIMIDEX [Suspect]
     Route: 048
     Dates: start: 20071001
  9. FUROSEMIDE [Concomitant]
  10. GABAPENTIN [Concomitant]
     Indication: PAIN
     Dosage: 300 MG 2-3 TIMES
  11. MULTI-VITAMINS [Concomitant]
  12. TEMAZEPAM [Concomitant]
     Indication: INSOMNIA
  13. ARIMIDEX [Suspect]
     Indication: BREAST LUMP REMOVAL
     Route: 048
     Dates: start: 20070601, end: 20070801
  14. NAPROXEN [Concomitant]
     Indication: ARTHRITIS
  15. POTASSIUM CHLORIDE [Concomitant]
  16. HYDROCODONE BITARTRATE [Concomitant]
     Indication: PAIN
  17. VITAMIN B50 [Concomitant]
  18. VICODIN [Concomitant]
  19. VITAMIN D [Concomitant]
  20. GLUCOSAMINE [Concomitant]
  21. FISH OIL [Concomitant]

REACTIONS (11)
  - TRIGGER FINGER [None]
  - LIGAMENT SPRAIN [None]
  - FALL [None]
  - ARTHRALGIA [None]
  - FIBROMYALGIA [None]
  - CARPAL TUNNEL SYNDROME [None]
  - MUSCULOSKELETAL STIFFNESS [None]
  - MUSCULAR WEAKNESS [None]
  - HYPOAESTHESIA [None]
  - PARAESTHESIA [None]
  - HOT FLUSH [None]
